FAERS Safety Report 20390514 (Version 1)
Quarter: 2022Q1

REPORT INFORMATION
  Report Type: Spontaneous
  Country: US (occurrence: US)
  Receive Date: 20220128
  Receipt Date: 20220128
  Transmission Date: 20220423
  Serious: No
  Sender: FDA-Public Use
  Company Number: US-ALLERGAN-2115404US

PATIENT
  Age: 28 Year
  Sex: Female

DRUGS (6)
  1. BOTOX COSMETIC [Suspect]
     Active Substance: ONABOTULINUMTOXINA
     Indication: Skin wrinkling
     Dosage: 12 UNITS, SINGLE
     Dates: start: 20210409, end: 20210409
  2. BOTOX COSMETIC [Suspect]
     Active Substance: ONABOTULINUMTOXINA
     Indication: Skin wrinkling
     Dosage: 8 UNITS, SINGLE
     Dates: start: 20210409, end: 20210409
  3. BOTOX COSMETIC [Suspect]
     Active Substance: ONABOTULINUMTOXINA
     Indication: Skin wrinkling
     Dosage: 4 UNITS, SINGLE
     Dates: start: 20210409, end: 20210409
  4. BOTOX COSMETIC [Suspect]
     Active Substance: ONABOTULINUMTOXINA
     Dosage: 4 UNITS, SINGLE
     Dates: start: 20210409, end: 20210409
  5. PFIZER-BIONTECH COVID-19 VACCINE [Concomitant]
     Active Substance: TOZINAMERAN
     Indication: COVID-19 immunisation
     Dosage: FIRST DOSE
     Dates: start: 20210329, end: 20210329
  6. ETHINYL ESTRADIOL\NORETHINDRONE [Concomitant]
     Active Substance: ETHINYL ESTRADIOL\NORETHINDRONE
     Indication: Contraception
     Dosage: UNK
     Dates: start: 2011

REACTIONS (10)
  - Nerve injury [Unknown]
  - Swollen tongue [Recovering/Resolving]
  - Pain in extremity [Recovering/Resolving]
  - Pain in jaw [Recovering/Resolving]
  - Muscular weakness [Recovering/Resolving]
  - Facial paresis [Recovering/Resolving]
  - Eyelid ptosis [Not Recovered/Not Resolved]
  - Hypoaesthesia [Recovering/Resolving]
  - Injection site bruising [Unknown]
  - Paraesthesia [Recovering/Resolving]

NARRATIVE: CASE EVENT DATE: 20210401
